FAERS Safety Report 25345000 (Version 2)
Quarter: 2025Q3

REPORT INFORMATION
  Report Type: Spontaneous
  Country: EU (occurrence: EU)
  Receive Date: 20250522
  Receipt Date: 20250703
  Transmission Date: 20251020
  Serious: Yes (Other)
  Sender: UCB
  Company Number: EU-UCBSA-2025029361

PATIENT
  Age: 35 Year
  Sex: Female

DRUGS (5)
  1. FENFLURAMINE HYDROCHLORIDE [Interacting]
     Active Substance: FENFLURAMINE HYDROCHLORIDE
     Indication: Severe myoclonic epilepsy of infancy
     Dosage: 2.5 MILLILITER, 2X/DAY (BID)
     Dates: start: 202408
  2. FENFLURAMINE HYDROCHLORIDE [Interacting]
     Active Substance: FENFLURAMINE HYDROCHLORIDE
     Dosage: 2.5 MILLILITER, 2X/DAY (BID)
  3. FENFLURAMINE HYDROCHLORIDE [Interacting]
     Active Substance: FENFLURAMINE HYDROCHLORIDE
     Dosage: 6 MILLILITER, 2X/DAY (BID)
  4. BRIVIACT [Interacting]
     Active Substance: BRIVARACETAM
     Indication: Seizure
  5. BRIVIACT [Interacting]
     Active Substance: BRIVARACETAM
     Dates: start: 20250110, end: 2025

REACTIONS (5)
  - Tonic convulsion [Recovered/Resolved]
  - Somnolence [Recovered/Resolved]
  - Drug interaction [Recovered/Resolved]
  - Off label use [Unknown]
  - Overdose [Unknown]

NARRATIVE: CASE EVENT DATE: 20250201
